FAERS Safety Report 4334643-0 (Version None)
Quarter: 2004Q2

REPORT INFORMATION
  Report Type: 
  Country: None (occurrence: None)
  Receive Date: 20040408
  Receipt Date: 20040330
  Transmission Date: 20050107
  Serious: Yes (Disabling)
  Sender: FDA-Public Use
  Company Number: PHBS2004JP04437

PATIENT
  Age: 25 Year
  Sex: Female

DRUGS (1)
  1. VOLTAREN [Suspect]
     Dosage: 50 MG/DAY
     Route: 054
     Dates: start: 19980101, end: 19980701

REACTIONS (2)
  - OCULOMUCOCUTANEOUS SYNDROME [None]
  - VISUAL ACUITY REDUCED [None]
